FAERS Safety Report 6926087-X (Version None)
Quarter: 2010Q3

REPORT INFORMATION
  Report Type: 
  Country: None (occurrence: None)
  Receive Date: 20100810
  Receipt Date: 20100518
  Transmission Date: 20110219
  Serious: Yes (Hospitalization, Other)
  Sender: FDA-Public Use
  Company Number: UK-ACCORD-002643

PATIENT
  Age: 68 Year
  Sex: Male

DRUGS (4)
  1. SIMVASTATIN [Suspect]
     Indication: BLOOD CHOLESTEROL INCREASED
     Dosage: 40.00-MG-1.00 PER /ORAL
     Dates: start: 20020101, end: 20080101
  2. FUSIDIC ACID [Suspect]
     Indication: INFECTION
     Dosage: 500.00 MG-3.00 PE/ORAL
     Route: 048
     Dates: start: 20081001, end: 20081001
  3. ATENOLOL [Concomitant]
  4. FLOXACILLIN (FLOXACILLIN) [Concomitant]

REACTIONS (7)
  - ALANINE AMINOTRANSFERASE INCREASED [None]
  - ANKLE FRACTURE [None]
  - ASPARTATE AMINOTRANSFERASE INCREASED [None]
  - BLOOD CREATININE INCREASED [None]
  - DRUG INTERACTION [None]
  - RHABDOMYOLYSIS [None]
  - STAPHYLOCOCCAL INFECTION [None]
